FAERS Safety Report 7967406-5 (Version None)
Quarter: 2011Q4

REPORT INFORMATION
  Report Type: 
  Country: None (occurrence: None)
  Receive Date: 20111206
  Receipt Date: 20111122
  Transmission Date: 20120403
  Serious: Yes (Hospitalization)
  Sender: FDA-Public Use
  Company Number: TPA2011A07923

PATIENT
  Age: 73 Year
  Sex: Female
  Weight: 76.2043 kg

DRUGS (6)
  1. ACTOS [Suspect]
     Indication: TYPE 2 DIABETES MELLITUS
     Dosage: 30 MG, 1 IN 1 D, PER ORAL ; 45 MG, 1 IN 1 D, PER ORAL
     Route: 048
     Dates: start: 20060401
  2. ACTOS [Suspect]
     Indication: TYPE 2 DIABETES MELLITUS
     Dosage: 30 MG, 1 IN 1 D, PER ORAL ; 45 MG, 1 IN 1 D, PER ORAL
     Route: 048
     Dates: start: 20000901, end: 20060401
  3. ASPIRIN [Concomitant]
  4. CENTRUM SILVER (ASCORBIC ACID, TOCOPHERYL ACETATE, RETINOL, ZINC,CALCI [Concomitant]
  5. DIOVAN/HCTZ (HYDROCHLOROTHIAZIDE, VALSARTAN) [Concomitant]
  6. METFORMIN HCL [Concomitant]

REACTIONS (5)
  - EFFUSION [None]
  - CHEST PAIN [None]
  - DYSPNOEA [None]
  - AXILLARY PAIN [None]
  - CARDIAC DISORDER [None]
